FAERS Safety Report 6426764-3 (Version None)
Quarter: 2009Q4

REPORT INFORMATION
  Report Type: 
  Country: None (occurrence: None)
  Receive Date: 20091020
  Receipt Date: 20090107
  Transmission Date: 20100525
  Serious: Yes (Other)
  Sender: FDA-Public Use
  Company Number: 55814

PATIENT
  Sex: Female
  Weight: 77.1115 kg

DRUGS (2)
  1. METHOTREXATE [Suspect]
     Indication: RHEUMATOID ARTHRITIS
     Dosage: 25MG QW SQ; WEEKLY
     Route: 058
  2. COMBIGAN [Concomitant]

REACTIONS (2)
  - NAUSEA [None]
  - VISUAL IMPAIRMENT [None]
